FAERS Safety Report 8164386 (Version 2)
Quarter: 2012Q4

REPORT INFORMATION
  Report Type: 
  Country: DE (occurrence: DE)
  Receive Date: 20110930
  Receipt Date: 20121008
  Transmission Date: 20130627
  Serious: Yes (Hospitalization)
  Sender: FDA-Public Use
  Company Number: DE-SANOFI-AVENTIS-2011SA063880

PATIENT
  Age: 28 Year
  Sex: Female

DRUGS (15)
  1. DESMOPRESSIN ACETATE [Suspect]
     Indication: POSTPARTUM HAEMORRHAGE
     Route: 065
  2. DINOPROSTONE [Concomitant]
     Indication: LABOR INDUCTION
     Route: 019
  3. OXYTOCIN [Concomitant]
     Indication: UTERINE ATONY
  4. METIL-ERGOMETRIN [Concomitant]
     Indication: UTERINE ATONY
  5. MISOPROSTOL [Concomitant]
     Indication: UTERINE ATONY
  6. SULPROSTONE [Concomitant]
     Dosage: infusion
  7. TRANEXAMIC ACID [Concomitant]
  8. BLOOD CELLS, PACKED HUMAN [Concomitant]
     Dosage: total 6
  9. PLASMA, FRESH FROZEN [Concomitant]
     Dosage: seven
  10. PLATELETS, HUMAN BLOOD [Concomitant]
     Dosage: two
  11. ANTITHROMBIN III [Concomitant]
  12. HUMAN-PPSB [Concomitant]
  13. FIBRINOGEN [Concomitant]
  14. PROTEIN C (COAGULATION INHIBITOR)/FACTOR X (STUART PROWER FACTOR)/FACTOR VII (PROCONVERTIN)/FACTOR I [Concomitant]
  15. PROTEIN C (COAGULATION INHIBITOR)/FACTOR X (STUART PROWER FACTOR)/FACTOR VII (PROCONVERTIN)/FACTOR I [Concomitant]

REACTIONS (7)
  - Thrombotic thrombocytopenic purpura [Unknown]
  - Platelet count decreased [Recovering/Resolving]
  - Haemolysis [Unknown]
  - Blood lactate dehydrogenase increased [Recovering/Resolving]
  - Azotaemia [Unknown]
  - Epistaxis [Unknown]
  - Subcutaneous haematoma [Unknown]
